FAERS Safety Report 10122716 (Version 2)
Quarter: 2015Q1

REPORT INFORMATION
  Report Type: Other
  Country: US (occurrence: US)
  Receive Date: 20140427
  Receipt Date: 20150216
  Transmission Date: 20150720
  Serious: Yes (Death, Hospitalization, Other)
  Sender: FDA-Public Use
  Company Number: US-GSKPPD-2014GSK022661

PATIENT
  Age: 75 Year
  Sex: Female

DRUGS (5)
  1. NIFEDIPINE-CR [Concomitant]
     Route: 048
  2. AVANDIA [Suspect]
     Active Substance: ROSIGLITAZONE MALEATE
     Indication: DIABETES MELLITUS
     Dosage: DATES OF AVANDIA USE COULD NOT BE CONFIRMED IN RECORDS REVIEWED.
     Route: 048
  3. ASPIRIN. [Concomitant]
     Active Substance: ASPIRIN
     Route: 048
  4. METOPROLOL [Concomitant]
     Active Substance: METOPROLOL
     Route: 048
  5. NITROGLYCERIN. [Concomitant]
     Active Substance: NITROGLYCERIN
     Dosage: Q. 10 MINUTES P.R.N. FOR ANGINA
     Route: 060

REACTIONS (4)
  - Cardiac failure congestive [Fatal]
  - Arteriosclerosis coronary artery [Unknown]
  - Myocardial infarction [Unknown]
  - Vascular graft [Recovered/Resolved]

NARRATIVE: CASE EVENT DATE: 20070606
